FAERS Safety Report 18766318 (Version 1)
Quarter: 2021Q1

REPORT INFORMATION
  Report Type: Spontaneous
  Country: US (occurrence: US)
  Receive Date: 20210121
  Receipt Date: 20210121
  Transmission Date: 20210419
  Serious: No
  Sender: FDA-Public Use
  Company Number: US-JNJFOC-20210117221

PATIENT
  Sex: Female
  Weight: 68.1 kg

DRUGS (3)
  1. AZATHIOPRINE. [Concomitant]
     Active Substance: AZATHIOPRINE
  2. STELARA [Suspect]
     Active Substance: USTEKINUMAB
     Indication: COLITIS
     Route: 058
  3. STELARA [Suspect]
     Active Substance: USTEKINUMAB

REACTIONS (1)
  - Insomnia [Not Recovered/Not Resolved]
